FAERS Safety Report 7347084-9 (Version None)
Quarter: 2011Q1

REPORT INFORMATION
  Report Type: 
  Country: None (occurrence: None)
  Receive Date: 20110303
  Receipt Date: 20110216
  Transmission Date: 20110831
  Serious: Yes (Other)
  Sender: FDA-Public Use
  Company Number: 2011AP000293

PATIENT
  Age: 26 Year
  Sex: Female

DRUGS (1)
  1. FLUTICASONE PROPIONATE [Suspect]
     Indication: UPPER-AIRWAY COUGH SYNDROME
     Dosage: 2SPR; NAS
     Route: 045
     Dates: end: 20110216

REACTIONS (6)
  - OROPHARYNGEAL PAIN [None]
  - ANAPHYLACTIC REACTION [None]
  - URTICARIA [None]
  - HYPERSENSITIVITY [None]
  - PANIC ATTACK [None]
  - CHEST PAIN [None]
